FAERS Safety Report 8117039-5 (Version None)
Quarter: 2012Q1

REPORT INFORMATION
  Report Type: 
  Country: None (occurrence: None)
  Receive Date: 20120206
  Receipt Date: 20120130
  Transmission Date: 20120608
  Serious: Yes (Other)
  Sender: FDA-Public Use
  Company Number: US-PFIZER INC-2010116211

PATIENT
  Sex: Female
  Weight: 63.492 kg

DRUGS (4)
  1. EFFEXOR XR [Concomitant]
     Dosage: 75 MG, 1X/DAY
  2. DIOVAN HCT [Concomitant]
     Indication: BLOOD PRESSURE INCREASED
     Dosage: UNK
     Dates: start: 20000101
  3. NORVASC [Concomitant]
     Dosage: 10 MG, 1X/DAY
  4. LIPITOR [Suspect]
     Indication: BLOOD CHOLESTEROL INCREASED
     Dosage: 5 MG, 1X/DAY
     Route: 048
     Dates: start: 20000101, end: 20100910

REACTIONS (4)
  - DRUG DOSE OMISSION [None]
  - PAIN IN EXTREMITY [None]
  - SURGERY [None]
  - HYPOAESTHESIA [None]
